FAERS Safety Report 19394858 (Version 8)
Quarter: 2022Q1

REPORT INFORMATION
  Report Type: Report from Study
  Country: US (occurrence: US)
  Receive Date: 20210609
  Receipt Date: 20220205
  Transmission Date: 20220423
  Serious: No
  Sender: FDA-Public Use
  Company Number: NVSC2021US120693

PATIENT
  Sex: Male

DRUGS (5)
  1. ENTRESTO [Suspect]
     Active Substance: SACUBITRIL\VALSARTAN
     Indication: Product used for unknown indication
     Dosage: 2 DF, BID
     Route: 065
     Dates: start: 20200801
  2. ENTRESTO [Suspect]
     Active Substance: SACUBITRIL\VALSARTAN
     Dosage: 1 DF, QD
     Route: 065
  3. ENTRESTO [Suspect]
     Active Substance: SACUBITRIL\VALSARTAN
     Dosage: 200 MG, BID(97/103 MG)
     Route: 065
     Dates: start: 20200801
  4. PREDNISONE [Suspect]
     Active Substance: PREDNISONE
     Indication: Product used for unknown indication
     Dosage: UNK
     Route: 065
  5. POTASSIUM [Suspect]
     Active Substance: POTASSIUM
     Indication: Product used for unknown indication
     Route: 065

REACTIONS (22)
  - Hypertension [Unknown]
  - Amnesia [Unknown]
  - Muscle spasms [Unknown]
  - Muscle atrophy [Unknown]
  - Arteriosclerosis [Unknown]
  - Blood lactic acid increased [Unknown]
  - Chronic obstructive pulmonary disease [Unknown]
  - Respiratory rate decreased [Unknown]
  - Condition aggravated [Unknown]
  - Product availability issue [Unknown]
  - Weight increased [Recovering/Resolving]
  - Productive cough [Unknown]
  - Dyspnoea [Recovering/Resolving]
  - Dysphonia [Unknown]
  - Hypoaesthesia [Unknown]
  - Asthenia [Unknown]
  - Hypotension [Unknown]
  - Cough [Unknown]
  - Dizziness [Unknown]
  - Fall [Unknown]
  - Weight decreased [Unknown]
  - Peripheral swelling [Unknown]

NARRATIVE: CASE EVENT DATE: 20210101
